FAERS Safety Report 9643036 (Version 2)
Quarter: 2013Q4

REPORT INFORMATION
  Report Type: Spontaneous
  Country: FR (occurrence: FR)
  Receive Date: 20131024
  Receipt Date: 20131128
  Transmission Date: 20140711
  Serious: Yes (Hospitalization, Other)
  Sender: FDA-Public Use
  Company Number: FR-JNJFOC-20131009788

PATIENT
  Sex: Male

DRUGS (1)
  1. RISPERDAL CONSTA LP [Suspect]
     Indication: DELIRIUM
     Route: 030

REACTIONS (4)
  - Osteitis [Unknown]
  - Coordination abnormal [Unknown]
  - Enuresis [Unknown]
  - Off label use [Unknown]
